FAERS Safety Report 10059957 (Version 1)
Quarter: 2014Q2

REPORT INFORMATION
  Report Type: Spontaneous
  Country: JP (occurrence: JP)
  Receive Date: 20140404
  Receipt Date: 20140404
  Transmission Date: 20141212
  Serious: Yes (Hospitalization)
  Sender: FDA-Public Use
  Company Number: JP-GLAXOSMITHKLINE-B0981728A

PATIENT
  Age: 19 Year
  Sex: Female

DRUGS (4)
  1. RELENZA [Suspect]
     Indication: INFLUENZA
     Dosage: 10MG TWICE PER DAY
     Route: 055
     Dates: start: 20140321, end: 20140325
  2. ASVERIN [Concomitant]
     Dosage: 20MG THREE TIMES PER DAY
     Route: 048
     Dates: start: 20140321
  3. ALLEGRA [Concomitant]
     Dosage: 60MG TWICE PER DAY
     Route: 048
     Dates: start: 20140321
  4. CALONAL [Concomitant]
     Route: 048
     Dates: start: 20140321

REACTIONS (3)
  - Altered state of consciousness [Recovered/Resolved]
  - Agitation [Recovered/Resolved]
  - Fall [Unknown]
